FAERS Safety Report 9924365 (Version 1)
Quarter: 2014Q1

REPORT INFORMATION
  Report Type: Report from Study
  Country: US (occurrence: US)
  Receive Date: 20140226
  Receipt Date: 20140226
  Transmission Date: 20141002
  Serious: Yes (Other)
  Sender: FDA-Public Use
  Company Number: US-ROCHE-1337605

PATIENT
  Sex: Male

DRUGS (9)
  1. LUCENTIS [Suspect]
     Indication: DIABETIC RETINOPATHY
     Dosage: 0.05 ML
     Route: 050
  2. LUCENTIS [Suspect]
     Indication: RETINAL DETACHMENT
  3. LUCENTIS [Suspect]
     Indication: DIABETIC RETINAL OEDEMA
  4. LISINOPRIL [Concomitant]
  5. METFORMIN [Concomitant]
     Route: 065
  6. GLIMEPIRIDE [Concomitant]
  7. JANUVIA [Concomitant]
  8. COMBIGAN [Concomitant]
  9. CIPRO [Concomitant]

REACTIONS (10)
  - Ocular hyperaemia [Unknown]
  - Eye pruritus [Unknown]
  - Visual acuity reduced [Unknown]
  - Vitreous floaters [Unknown]
  - Eye pain [Unknown]
  - Muscle twitching [Unknown]
  - Vision blurred [Unknown]
  - Photophobia [Unknown]
  - Photopsia [Unknown]
  - Metamorphopsia [Unknown]
